FAERS Safety Report 25642636 (Version 6)
Quarter: 2025Q4

REPORT INFORMATION
  Report Type: Report from Study
  Country: US (occurrence: US)
  Receive Date: 20250805
  Receipt Date: 20251222
  Transmission Date: 20260118
  Serious: Yes (Hospitalization, Other)
  Sender: ABBVIE
  Company Number: US-ABBVIE-6398806

PATIENT
  Age: 61 Year
  Sex: Female
  Weight: 163.29 kg

DRUGS (2)
  1. SKYRIZI [Suspect]
     Active Substance: RISANKIZUMAB-RZAA
     Indication: Colitis ulcerative
     Dosage: SOLUTION FOR INJECTION IN PRE-FILLED INJECTOR
     Route: 058
     Dates: start: 20250430
  2. SKYRIZI [Suspect]
     Active Substance: RISANKIZUMAB-RZAA
     Route: 058
     Dates: start: 2024

REACTIONS (20)
  - Anaemia [Recovering/Resolving]
  - Upper gastrointestinal haemorrhage [Recovered/Resolved]
  - Dyspnoea [Not Recovered/Not Resolved]
  - Insomnia [Recovered/Resolved]
  - Melaena [Recovered/Resolved]
  - Discomfort [Not Recovered/Not Resolved]
  - Gastrointestinal motility disorder [Recovered/Resolved]
  - Asthenia [Recovering/Resolving]
  - Constipation [Recovering/Resolving]
  - Arterial occlusive disease [Recovered/Resolved]
  - Faeces discoloured [Recovered/Resolved]
  - Arteriovenous malformation [Recovered/Resolved]
  - Nasal neoplasm [Recovered/Resolved]
  - Epistaxis [Recovered/Resolved]
  - Pharyngeal haemorrhage [Recovered/Resolved]
  - Cardiac failure acute [Recovered/Resolved]
  - Pleural effusion [Recovered/Resolved]
  - Chronic obstructive pulmonary disease [Unknown]
  - Gait disturbance [Not Recovered/Not Resolved]
  - Peripheral swelling [Not Recovered/Not Resolved]

NARRATIVE: CASE EVENT DATE: 20250101
